FAERS Safety Report 9324424 (Version 1)
Quarter: 2013Q2

REPORT INFORMATION
  Report Type: Spontaneous
  Country: FR (occurrence: FR)
  Receive Date: 20130603
  Receipt Date: 20130603
  Transmission Date: 20140414
  Serious: Yes (Other)
  Sender: FDA-Public Use
  Company Number: FR-009507513-1302FRA004921

PATIENT
  Age: 35 Year
  Sex: Female

DRUGS (2)
  1. NEXPLANON [Suspect]
     Indication: CONTRACEPTION
     Dosage: UNK
     Route: 058
     Dates: start: 20120624
  2. ANTIVIRAL (UNSPECIFIED) [Interacting]
     Indication: HIV TEST POSITIVE

REACTIONS (3)
  - Abortion induced [Unknown]
  - Drug interaction [Unknown]
  - Unintended pregnancy [Recovered/Resolved]
